FAERS Safety Report 6270909-5 (Version None)
Quarter: 2009Q3

REPORT INFORMATION
  Report Type: 
  Country: None (occurrence: None)
  Receive Date: 20090716
  Receipt Date: 20090601
  Transmission Date: 20100115
  Serious: Yes (Other)
  Sender: FDA-Public Use
  Company Number: PHHY2009JP28541

PATIENT
  Age: 65 Year
  Sex: Female

DRUGS (1)
  1. FAMVIR [Suspect]
     Dosage: 1500MG/DAY
     Route: 048
     Dates: start: 20090514, end: 20090514

REACTIONS (3)
  - HYPERTENSION [None]
  - PALPITATIONS [None]
  - TACHYCARDIA [None]
